FAERS Safety Report 7746127-8 (Version None)
Quarter: 2011Q3

REPORT INFORMATION
  Report Type: 
  Country: None (occurrence: None)
  Receive Date: 20110913
  Receipt Date: 20110908
  Transmission Date: 20111222
  Serious: Yes (Death)
  Sender: FDA-Public Use
  Company Number: JP-SANOFI-AVENTIS-2011SA055052

PATIENT
  Age: 54 Year
  Sex: Male

DRUGS (9)
  1. OXALIPLATIN [Suspect]
     Indication: RECTAL CANCER
     Dosage: DOSE: 130 MG/BODY ROUTE: DR
     Dates: start: 20090302
  2. FLUOROURACIL [Suspect]
     Route: 042
     Dates: end: 20090408
  3. FLUOROURACIL [Suspect]
     Indication: RECTAL CANCER
     Dosage: DOSE: 500 MG/BODY FORM:  BOLUS
     Route: 042
     Dates: start: 20090302, end: 20090302
  4. FLUOROURACIL [Suspect]
     Dosage: DOSE: 3750 MG/BODY/D1-2 FORM: CONTINOUS INFUSIONROUTE: DR
     Route: 042
     Dates: start: 20090302
  5. LEUCOVORIN CALCIUM [Concomitant]
     Route: 065
  6. RED BLOOD CELLS, CONCENTRATED [Concomitant]
     Indication: GASTRIC ULCER HAEMORRHAGE
     Dosage: ROUTE: DR
     Dates: start: 20090202
  7. OXALIPLATIN [Suspect]
     Dates: end: 20090408
  8. LEUCOVORIN CALCIUM [Concomitant]
     Indication: RECTAL CANCER
     Dosage: ROUTE: DR
     Dates: start: 20090302, end: 20090302
  9. LEUCOVORIN CALCIUM [Concomitant]
     Route: 065
     Dates: start: 20090408, end: 20090408

REACTIONS (1)
  - HEPATIC FAILURE [None]
